FAERS Safety Report 6389673-4 (Version None)
Quarter: 2009Q4

REPORT INFORMATION
  Report Type: 
  Country: None (occurrence: None)
  Receive Date: 20091002
  Receipt Date: 20091002
  Transmission Date: 20100525
  Serious: Yes (Hospitalization)
  Sender: FDA-Public Use
  Company Number: None

PATIENT
  Age: 56 Year
  Sex: Male

DRUGS (2)
  1. ZOLPIDEM [Suspect]
     Indication: SLEEP DISORDER
     Dosage: 10 MG HS PO
     Route: 048
     Dates: start: 20080917, end: 20090805
  2. CETIRIZINE [Suspect]
     Indication: MULTIPLE ALLERGIES
     Dosage: 10 MG HS PO
     Route: 048
     Dates: start: 20090505, end: 20090805

REACTIONS (5)
  - HEAD INJURY [None]
  - INSOMNIA [None]
  - LOSS OF CONSCIOUSNESS [None]
  - SKIN LACERATION [None]
  - SOMNAMBULISM [None]
